FAERS Safety Report 19084864 (Version 4)
Quarter: 2021Q2

REPORT INFORMATION
  Report Type: Report from Study
  Country: CN (occurrence: CN)
  Receive Date: 20210401
  Receipt Date: 20210515
  Transmission Date: 20210717
  Serious: Yes (Other)
  Sender: FDA-Public Use
  Company Number: CN-ROCHE-2797417

PATIENT
  Age: 38 Year
  Sex: Male
  Weight: 71.5 kg

DRUGS (2)
  1. ATEZOLIZUMAB. [Suspect]
     Active Substance: ATEZOLIZUMAB
     Indication: MALIGNANT NEOPLASM OF THYMUS
     Dosage: ON 25/FEB/2021, HE RECEIVED THE MOST RECENT DOSE OF ATEZOLIZUMAB PRIOR TO SAE.
     Route: 042
     Dates: start: 20201023, end: 20210225
  2. OSELTAMIVIR [Concomitant]
     Active Substance: OSELTAMIVIR
     Dosage: 1 CAPSULE
     Dates: start: 20201123, end: 20201127

REACTIONS (1)
  - Blood bilirubin increased [Not Recovered/Not Resolved]

NARRATIVE: CASE EVENT DATE: 20201112
